FAERS Safety Report 16982670 (Version 3)
Quarter: 2019Q4

REPORT INFORMATION
  Report Type: Spontaneous
  Country: JP (occurrence: JP)
  Receive Date: 20191101
  Receipt Date: 20191217
  Transmission Date: 20200122
  Serious: Yes (Death, Hospitalization)
  Sender: FDA-Public Use
  Company Number: JP-ELI_LILLY_AND_COMPANY-JP201910016079

PATIENT
  Age: 66 Year
  Sex: Female
  Weight: 47 kg

DRUGS (2)
  1. NEXIUM [Concomitant]
     Active Substance: ESOMEPRAZOLE MAGNESIUM
  2. OLUMIANT [Suspect]
     Active Substance: BARICITINIB
     Indication: RHEUMATOID ARTHRITIS
     Dosage: 4 MG, DAILY
     Route: 048
     Dates: start: 20190626, end: 20191023

REACTIONS (3)
  - Lung carcinoma cell type unspecified stage IV [Fatal]
  - Metastases to central nervous system [Fatal]
  - Metastases to liver [Fatal]

NARRATIVE: CASE EVENT DATE: 20191013
